FAERS Safety Report 14300694 (Version 2)
Quarter: 2018Q1

REPORT INFORMATION
  Report Type: Spontaneous
  Country: GB (occurrence: GB)
  Receive Date: 20171219
  Receipt Date: 20180105
  Transmission Date: 20180509
  Serious: Yes (Other)
  Sender: FDA-Public Use
  Company Number: GB-AUROBINDO-AUR-APL-2017-45896

PATIENT
  Sex: Female

DRUGS (4)
  1. PARACETAMOL [Suspect]
     Active Substance: ACETAMINOPHEN
     Indication: PAIN
     Dosage: UNK ()
     Route: 065
  2. PARACETAMOL/COFFEINE [Suspect]
     Active Substance: ACETAMINOPHEN\CAFFEINE
     Indication: HEADACHE
     Dosage: 1 DF, 2 TOTAL
     Route: 048
     Dates: start: 20170502, end: 20170502
  3. PARACETAMOL [Suspect]
     Active Substance: ACETAMINOPHEN
     Indication: PRODUCT USED FOR UNKNOWN INDICATION
     Route: 065
  4. PARACETAMOL/COFFEINE [Suspect]
     Active Substance: ACETAMINOPHEN\CAFFEINE
     Dosage: 2 DOSES (4 TABLETS)
     Route: 048
     Dates: start: 20170205, end: 20170205

REACTIONS (9)
  - Emotional distress [Unknown]
  - Prolonged pregnancy [Recovered/Resolved]
  - Product substitution error [Unknown]
  - Muscle strain [Recovered/Resolved with Sequelae]
  - Stress [Recovered/Resolved]
  - Peripartum haemorrhage [Not Recovered/Not Resolved]
  - Exposure during pregnancy [Unknown]
  - Anxiety [Recovered/Resolved]
  - Wrong drug administered [Unknown]

NARRATIVE: CASE EVENT DATE: 20170305
